FAERS Safety Report 5090402-5 (Version None)
Quarter: 2006Q3

REPORT INFORMATION
  Report Type: 
  Country: None (occurrence: None)
  Receive Date: 20060823
  Receipt Date: 20060817
  Transmission Date: 20061208
  Serious: Yes (Disabling)
  Sender: FDA-Public Use
  Company Number: 2006-07-0445

PATIENT
  Age: 46 Year
  Sex: Female
  Weight: 74.3899 kg

DRUGS (5)
  1. ASMANEX TWISTHALER [Suspect]
     Dosage: 1 PUFF QD INHALATION
     Route: 055
     Dates: start: 20060201, end: 20060301
  2. ALBUTEROL [Concomitant]
  3. SINGULAIR [Concomitant]
  4. DRUG NAME UNKNOWN (CATEGORY ONLY - NOT A DRUG ENTRY) [Concomitant]
  5. VICKS DAYQUIL [Concomitant]

REACTIONS (2)
  - DIZZINESS [None]
  - IMPAIRED WORK ABILITY [None]
